FAERS Safety Report 12960315 (Version 1)
Quarter: 2016Q4

REPORT INFORMATION
  Report Type: Spontaneous
  Country: US (occurrence: US)
  Receive Date: 20161121
  Receipt Date: 20161121
  Transmission Date: 20170207
  Serious: Yes (Death, Other)
  Sender: FDA-Public Use
  Company Number: US-QILU PHARMACEUTICAL CO.LTD.-QLU-000026-2016

PATIENT
  Age: 10 Year
  Sex: Male

DRUGS (8)
  1. METRONIDAZOLE. [Concomitant]
     Active Substance: METRONIDAZOLE
     Indication: PRODUCT USED FOR UNKNOWN INDICATION
     Dosage: UNK
     Route: 042
  2. ONDANSETRON [Suspect]
     Active Substance: ONDANSETRON
     Indication: PRODUCT USED FOR UNKNOWN INDICATION
     Dosage: 4 MG, SINGLE
     Route: 042
  3. MORPHINE [Suspect]
     Active Substance: MORPHINE
     Indication: PRODUCT USED FOR UNKNOWN INDICATION
     Dosage: 2 MG, UNK
     Route: 042
  4. ONDANSETRON [Suspect]
     Active Substance: ONDANSETRON
     Dosage: 4 UNK, UNK
     Route: 042
  5. NORMAL SALINE [Suspect]
     Active Substance: SODIUM CHLORIDE
     Indication: PRODUCT USED FOR UNKNOWN INDICATION
     Dosage: 1 L, UNK
     Route: 065
  6. NORMAL SALINE [Suspect]
     Active Substance: SODIUM CHLORIDE
     Dosage: 1 UNK, UNK
     Route: 065
  7. LACTATED RINGERS [Concomitant]
     Active Substance: CALCIUM CHLORIDE\POTASSIUM CHLORIDE\SODIUM CHLORIDE\SODIUM LACTATE
     Indication: PRODUCT USED FOR UNKNOWN INDICATION
     Dosage: 100 ML, UNK
     Route: 065
  8. CEFAZOLIN [Concomitant]
     Active Substance: CEFAZOLIN
     Indication: PRODUCT USED FOR UNKNOWN INDICATION
     Dosage: UNK
     Route: 042

REACTIONS (5)
  - Respiration abnormal [Unknown]
  - Ventricular tachycardia [Unknown]
  - Unresponsive to stimuli [Unknown]
  - Tachycardia [Unknown]
  - Cardiac arrest [Fatal]
